FAERS Safety Report 9348170 (Version 1)
Quarter: 2013Q2

REPORT INFORMATION
  Report Type: Spontaneous
  Country: JP (occurrence: JP)
  Receive Date: 20130614
  Receipt Date: 20130614
  Transmission Date: 20140414
  Serious: Yes (Hospitalization)
  Sender: FDA-Public Use
  Company Number: JP-JNJFOC-20130603413

PATIENT
  Age: 22 Year
  Sex: Female
  Weight: 43.6 kg

DRUGS (4)
  1. INFLIXIMAB, RECOMBINANT [Suspect]
     Indication: COLITIS ULCERATIVE
     Dosage: 14TH WEEK ADMINISTRATION (4TH INFUSION)
     Route: 042
  2. INFLIXIMAB, RECOMBINANT [Suspect]
     Indication: COLITIS ULCERATIVE
     Dosage: 220 MG (INFUSIONS GIVEN AT 2,6,14 WEEKS)
     Route: 042
  3. PREDNISOLONE [Concomitant]
     Indication: COLITIS ULCERATIVE
     Dosage: TAPERING
     Route: 065
  4. PREDNISOLONE [Concomitant]
     Indication: COLITIS ULCERATIVE
     Route: 065

REACTIONS (1)
  - Takayasu^s arteritis [Unknown]
